FAERS Safety Report 5568372-2 (Version None)
Quarter: 2007Q4

REPORT INFORMATION
  Report Type: 
  Country: None (occurrence: None)
  Receive Date: 20071220
  Receipt Date: 20071211
  Transmission Date: 20080405
  Serious: Yes (Hospitalization)
  Sender: FDA-Public Use
  Company Number: DE-BAYER-200710600BVD

PATIENT
  Age: 66 Year
  Sex: Female
  Weight: 53 kg

DRUGS (6)
  1. SORAFENIB [Suspect]
     Indication: HEPATIC NEOPLASM MALIGNANT
     Dosage: TOTAL DAILY DOSE: 800 MG
     Route: 048
     Dates: start: 20060302
  2. PANTOPRAZOLE SODIUM [Concomitant]
     Route: 065
     Dates: start: 20070501
  3. RAMIPRIL [Concomitant]
     Route: 065
     Dates: start: 20050320
  4. PRAVASTATIN SODIUM [Concomitant]
     Route: 065
     Dates: start: 20050920
  5. NORVASC [Concomitant]
     Route: 065
     Dates: start: 20060301
  6. NOVALGIN [Concomitant]
     Dosage: TOTAL DAILY DOSE: 80 GTT
     Route: 048
     Dates: start: 20070507

REACTIONS (1)
  - GASTRIC ULCER [None]
